FAERS Safety Report 7582952-4 (Version None)
Quarter: 2011Q2

REPORT INFORMATION
  Report Type: 
  Country: None (occurrence: None)
  Receive Date: 20110630
  Receipt Date: 20080728
  Transmission Date: 20111010
  Serious: Yes (Hospitalization, Other)
  Sender: FDA-Public Use
  Company Number: US-BAYER-200829479NA

PATIENT
  Age: 50 Year
  Sex: Male
  Weight: 91 kg

DRUGS (21)
  1. EPINEPHRINE [Concomitant]
     Dosage: 0.1 MICROGRAM/MINUTE
     Route: 042
     Dates: start: 20041221
  2. PRIMACOR [Concomitant]
     Dosage: 0.5MICROGRAM/KG/MINUTE
     Route: 042
     Dates: start: 20041221
  3. LEVOPHED [Concomitant]
     Dosage: UNK
     Route: 042
     Dates: start: 20041221
  4. INSULIN [Concomitant]
     Dosage: UNK
     Dates: start: 20041221
  5. HEPARIN [Concomitant]
     Dosage: 1100UNITS/HR
     Route: 042
     Dates: start: 20041221
  6. FENTANYL [Concomitant]
     Dosage: UNK
     Route: 042
     Dates: start: 20041221
  7. AMIODARONE HCL [Concomitant]
     Dosage: UNK
     Route: 042
     Dates: start: 20041221
  8. POTASSIUM [Concomitant]
     Dosage: 30 MILLIEQUIVILANTS
     Route: 042
     Dates: start: 20041221
  9. CALCIUM CHLORIDE [Concomitant]
     Dosage: UNK
     Route: 042
     Dates: start: 20041221
  10. TRASYLOL [Suspect]
     Indication: CORONARY ARTERY BYPASS
     Dosage: 200CC, CARDIOPULMONARY BYPASS PUMP PRIME
     Route: 042
     Dates: start: 20041221
  11. MAGNESIUM SULFATE [Concomitant]
     Dosage: UNK
     Route: 042
     Dates: start: 20041221
  12. PROTAMINE SULFATE [Concomitant]
     Dosage: UNK
     Route: 042
     Dates: start: 20041221
  13. CARDIOPLEGIA [Concomitant]
     Dosage: 2 L, UNK
     Route: 042
     Dates: start: 20041220
  14. CORTICOSTEROIDS [Concomitant]
     Indication: HEADACHE
     Route: 048
  15. AMIODARONE HCL [Concomitant]
     Dosage: 1MG/MIN
     Route: 042
     Dates: start: 20041221
  16. VERSED [Concomitant]
     Dosage: UNK
     Dates: start: 20041221
  17. METOPROLOL TARTRATE [Concomitant]
     Dosage: 50 MG, BID
     Route: 048
     Dates: start: 20041221
  18. LASIX [Concomitant]
     Dosage: UNK
     Route: 042
     Dates: start: 20041221
  19. INTEGRILIN [Concomitant]
     Dosage: UNK
     Route: 042
     Dates: start: 20041221
  20. NITROGLYCERIN [Concomitant]
     Dosage: UNK
     Route: 042
     Dates: start: 20041221
  21. ANCEF [Concomitant]
     Dosage: 1 G, UNK
     Route: 042
     Dates: start: 20041221

REACTIONS (12)
  - RENAL INJURY [None]
  - ANXIETY [None]
  - UNEVALUABLE EVENT [None]
  - FEAR [None]
  - INJURY [None]
  - ANHEDONIA [None]
  - RENAL FAILURE [None]
  - PAIN [None]
  - EMOTIONAL DISTRESS [None]
  - CARDIAC FAILURE [None]
  - STRESS [None]
  - RENAL IMPAIRMENT [None]
